FAERS Safety Report 21681339 (Version 2)
Quarter: 2023Q1

REPORT INFORMATION
  Report Type: Spontaneous
  Country: US (occurrence: US)
  Receive Date: 20221205
  Receipt Date: 20230126
  Transmission Date: 20230417
  Serious: Yes (Other)
  Sender: FDA-Public Use
  Company Number: US-PFIZER INC-PV202200116165

PATIENT
  Age: 52 Year
  Sex: Female

DRUGS (1)
  1. NYVEPRIA [Suspect]
     Active Substance: PEGFILGRASTIM-APGF
     Dosage: UNK

REACTIONS (7)
  - Breast cancer female [Unknown]
  - Malignant nipple neoplasm [Unknown]
  - Neoplasm progression [Unknown]
  - Nervousness [Unknown]
  - Cancer pain [Unknown]
  - Endocrine disorder [Unknown]
  - Hypercalcaemia of malignancy [Unknown]
